FAERS Safety Report 25087805 (Version 1)
Quarter: 2025Q1

REPORT INFORMATION
  Report Type: Spontaneous
  Country: IE (occurrence: IE)
  Receive Date: 20250318
  Receipt Date: 20250318
  Transmission Date: 20250408
  Serious: Yes (Hospitalization, Other)
  Sender: UNICHEM
  Company Number: IE-UNICHEM LABORATORIES LIMITED-UNI-2025-IE-001529

PATIENT

DRUGS (3)
  1. METFORMIN [Suspect]
     Active Substance: METFORMIN HYDROCHLORIDE
     Indication: Diabetes mellitus
     Route: 064
  2. LAMOTRIGINE [Suspect]
     Active Substance: LAMOTRIGINE
     Indication: Product used for unknown indication
     Route: 064
  3. LEVOTHYROXINE [Suspect]
     Active Substance: LEVOTHYROXINE
     Indication: Product used for unknown indication
     Route: 064

REACTIONS (3)
  - Foetal growth restriction [Recovering/Resolving]
  - Hypoglycaemia neonatal [Recovering/Resolving]
  - Maternal exposure during pregnancy [Unknown]
